FAERS Safety Report 15096204 (Version 1)
Quarter: 2018Q3

REPORT INFORMATION
  Report Type: Spontaneous
  Country: US (occurrence: US)
  Receive Date: 20180702
  Receipt Date: 20180702
  Transmission Date: 20181010
  Serious: Yes (Death)
  Sender: FDA-Public Use
  Company Number: PHHY2018US032217

PATIENT
  Age: 71 Year
  Sex: Female

DRUGS (1)
  1. CARBOPLATIN. [Suspect]
     Active Substance: CARBOPLATIN
     Indication: LARYNGEAL CANCER
     Dosage: AUC 5 EVERY 3 WEEKS
     Route: 065

REACTIONS (5)
  - Failure to thrive [Fatal]
  - Dehydration [Fatal]
  - Toxicity to various agents [Fatal]
  - Hypoglycaemia [Fatal]
  - Hypoxic-ischaemic encephalopathy [Fatal]
